FAERS Safety Report 15789924 (Version 2)
Quarter: 2019Q1

REPORT INFORMATION
  Report Type: Spontaneous
  Country: US (occurrence: US)
  Receive Date: 20190104
  Receipt Date: 20190201
  Transmission Date: 20190417
  Serious: No
  Sender: FDA-Public Use
  Company Number: US-009507513-1812USA009951

PATIENT
  Age: 18 Year
  Sex: Female
  Weight: 63.49 kg

DRUGS (2)
  1. NEXPLANON [Suspect]
     Active Substance: ETONOGESTREL
     Indication: CONTRACEPTION
     Dosage: 1 IMPLANT, IN HER LEFT ARM
     Route: 059
     Dates: start: 20181128, end: 20181212
  2. ZOLOFT [Concomitant]
     Active Substance: SERTRALINE HYDROCHLORIDE
     Dosage: 100 MILLIGRAM DAILY

REACTIONS (8)
  - Implant site erythema [Recovered/Resolved]
  - Rash maculo-papular [Not Recovered/Not Resolved]
  - Implant site pain [Recovered/Resolved]
  - Implant site urticaria [Recovering/Resolving]
  - Implant site pruritus [Not Recovered/Not Resolved]
  - Implant site mass [Not Recovered/Not Resolved]
  - Implant site irritation [Not Recovered/Not Resolved]
  - Urticaria [Not Recovered/Not Resolved]

NARRATIVE: CASE EVENT DATE: 2018
